FAERS Safety Report 5382707-5 (Version None)
Quarter: 2007Q3

REPORT INFORMATION
  Report Type: 
  Country: None (occurrence: None)
  Receive Date: 20070703
  Receipt Date: 20070703
  Transmission Date: 20080115
  Serious: Yes (Other)
  Sender: FDA-Public Use
  Company Number: None

PATIENT
  Age: 47 Year
  Sex: Female
  Weight: 99.7913 kg

DRUGS (1)
  1. AVELOX [Suspect]
     Indication: INFLAMMATION
     Dosage: ONE PO
     Route: 048
     Dates: start: 20070504, end: 20070504

REACTIONS (3)
  - DRUG HYPERSENSITIVITY [None]
  - DRUG TOXICITY [None]
  - STEVENS-JOHNSON SYNDROME [None]
